FAERS Safety Report 19062271 (Version 2)
Quarter: 2021Q2

REPORT INFORMATION
  Report Type: Spontaneous
  Country: HU (occurrence: HU)
  Receive Date: 20210326
  Receipt Date: 20210402
  Transmission Date: 20210717
  Serious: Yes (Death, Other)
  Sender: FDA-Public Use
  Company Number: HU-B.I. PHARMACEUTICALS,INC./RIDGEFIELD-2021-BI-092408

PATIENT
  Age: 25 Year
  Sex: Male

DRUGS (1)
  1. GILOTRIF [Suspect]
     Active Substance: AFATINIB
     Indication: LUNG ADENOCARCINOMA
     Route: 065

REACTIONS (1)
  - Malignant neoplasm progression [Fatal]
